FAERS Safety Report 8912138 (Version 1)
Quarter: 2012Q4

REPORT INFORMATION
  Report Type: 
  Country: US (occurrence: US)
  Receive Date: 20121116
  Receipt Date: 20121116
  Transmission Date: 20130627
  Serious: No
  Sender: FDA-Public Use
  Company Number: US-009507513-1211USA006173

PATIENT
  Age: 26 Year
  Sex: Male

DRUGS (1)
  1. INTRONA [Suspect]
     Indication: MALIGNANT MELANOMA
     Dosage: 10 million IU per meter squared/3 times per week
     Route: 058
     Dates: start: 201208

REACTIONS (1)
  - Erectile dysfunction [Not Recovered/Not Resolved]
